FAERS Safety Report 9459707 (Version 1)
Quarter: 2013Q3

REPORT INFORMATION
  Report Type: Spontaneous
  Country: TR (occurrence: TR)
  Receive Date: 20130815
  Receipt Date: 20130815
  Transmission Date: 20140515
  Serious: Yes (Hospitalization)
  Sender: FDA-Public Use
  Company Number: TR-009507513-1308TUR004717

PATIENT
  Age: 47 Year
  Sex: Male

DRUGS (1)
  1. AERIUS [Suspect]
     Indication: URTICARIA
     Dosage: 1 DF, PRN
     Route: 048
     Dates: start: 20130801, end: 20130802

REACTIONS (2)
  - Generalised erythema [Recovering/Resolving]
  - Pruritus generalised [Recovering/Resolving]
